FAERS Safety Report 9778546 (Version 1)
Quarter: 2013Q4

REPORT INFORMATION
  Report Type: Spontaneous
  Country: US (occurrence: None)
  Receive Date: 20131219
  Receipt Date: 20131219
  Transmission Date: 20140711
  Serious: Yes (Other)
  Sender: FDA-Public Use
  Company Number: PL-AE13-000029

PATIENT
  Sex: Female

DRUGS (3)
  1. CLEAR EYES COMPLETE 7 SYMPTOM RELIEF [Suspect]
     Indication: EYE IRRITATION
     Route: 047
     Dates: start: 201310, end: 201310
  2. SIMVASTATIN [Concomitant]
  3. AMLODIPINE [Concomitant]

REACTIONS (2)
  - Vision blurred [None]
  - Visual acuity reduced [None]
